FAERS Safety Report 15635723 (Version 1)
Quarter: 2018Q4

REPORT INFORMATION
  Report Type: Report from Study
  Country: US (occurrence: US)
  Receive Date: 20181120
  Receipt Date: 20181120
  Transmission Date: 20190205
  Serious: Yes (Other)
  Sender: FDA-Public Use
  Company Number: US-BRISTOL-MYERS SQUIBB COMPANY-BMS-2018-091063

PATIENT
  Age: 70 Year
  Sex: Female

DRUGS (4)
  1. APIXABAN [Suspect]
     Active Substance: APIXABAN
     Indication: PULMONARY EMBOLISM
     Route: 065
  2. APIXABAN [Suspect]
     Active Substance: APIXABAN
     Indication: CEREBROVASCULAR ACCIDENT PROPHYLAXIS
     Dosage: 5 MG, BID
     Route: 048
     Dates: start: 201708
  3. LEVOTHYROXIN [Concomitant]
     Active Substance: LEVOTHYROXINE
     Indication: PRODUCT USED FOR UNKNOWN INDICATION
     Dosage: 1 DF, DAILY
     Route: 065
  4. VITAMIN D [Concomitant]
     Active Substance: CHOLECALCIFEROL
     Indication: PRODUCT USED FOR UNKNOWN INDICATION
     Dosage: 100000 U, UNK
     Route: 065

REACTIONS (2)
  - Urinary tract infection [Unknown]
  - Intervertebral disc protrusion [Unknown]

NARRATIVE: CASE EVENT DATE: 20180926
